FAERS Safety Report 8885662 (Version 2)
Quarter: 2013Q2

REPORT INFORMATION
  Report Type: Spontaneous
  Country: BR (occurrence: BR)
  Receive Date: 20121105
  Receipt Date: 20130405
  Transmission Date: 20140414
  Serious: Yes (Death, Hospitalization, Other)
  Sender: FDA-Public Use
  Company Number: PHHY2012BR099105

PATIENT
  Age: 84 Year
  Sex: Male

DRUGS (4)
  1. EXELON [Suspect]
     Indication: DEMENTIA ALZHEIMER^S TYPE
     Dosage: 18 MG, DAILY
     Route: 062
  2. FORASEQ [Suspect]
     Indication: EMPHYSEMA
     Dosage: 1 DF, BID (12/400 UG CAPSULES TWO TIMES A DAY)
  3. ENALAPRIL [Concomitant]
     Indication: BLOOD PRESSURE ABNORMAL
     Dosage: UNK UKN, UNK
  4. AAS [Concomitant]
     Indication: ANTICOAGULANT THERAPY
     Dosage: UNK UKN, UNK

REACTIONS (16)
  - Infarction [Fatal]
  - Asphyxia [Unknown]
  - Infection [Unknown]
  - Haematuria [Unknown]
  - Pneumonia [Unknown]
  - Prostate cancer [Unknown]
  - Urinary tract infection [Unknown]
  - Blood disorder [Unknown]
  - Anaemia [Unknown]
  - Blood potassium abnormal [Unknown]
  - Blood urea abnormal [Unknown]
  - Blood creatinine abnormal [Unknown]
  - Blood glucose abnormal [Unknown]
  - Enzyme abnormality [Unknown]
  - Blood gases abnormal [Unknown]
  - White blood cell disorder [Unknown]
